FAERS Safety Report 24744414 (Version 6)
Quarter: 2025Q1

REPORT INFORMATION
  Report Type: Spontaneous
  Country: HN (occurrence: HN)
  Receive Date: 20241217
  Receipt Date: 20250304
  Transmission Date: 20250409
  Serious: No
  Sender: PFIZER
  Company Number: HN-PFIZER INC-PV202400158629

PATIENT
  Age: 2 Year
  Sex: Female

DRUGS (1)
  1. GENOTROPIN [Suspect]
     Active Substance: SOMATROPIN
     Dosage: 0.03 MG, DAILY

REACTIONS (3)
  - Product prescribing error [Unknown]
  - Device defective [Unknown]
  - Device leakage [Unknown]
